FAERS Safety Report 5624713-9 (Version None)
Quarter: 2008Q1

REPORT INFORMATION
  Report Type: 
  Country: None (occurrence: None)
  Receive Date: 20080213
  Receipt Date: 20080211
  Transmission Date: 20080703
  Serious: Yes (Hospitalization)
  Sender: FDA-Public Use
  Company Number: B0507666A

PATIENT
  Age: 81 Year
  Sex: Female

DRUGS (4)
  1. ARTIST [Suspect]
     Indication: CARDIAC FAILURE
     Dosage: 7.5MG PER DAY
     Route: 048
  2. VEGETAMIN [Suspect]
     Indication: DRUG USE FOR UNKNOWN INDICATION
     Route: 048
  3. WARFARIN SODIUM [Concomitant]
  4. LASIX [Concomitant]

REACTIONS (1)
  - GRANULOCYTE COUNT DECREASED [None]
